FAERS Safety Report 7646016-3 (Version None)
Quarter: 2011Q3

REPORT INFORMATION
  Report Type: 
  Country: None (occurrence: None)
  Receive Date: 20110731
  Receipt Date: 20110718
  Transmission Date: 20111222
  Serious: Yes (Hospitalization)
  Sender: FDA-Public Use
  Company Number: GB-MYLANLABS-2011S1014938

PATIENT
  Age: 78 Year
  Sex: Male

DRUGS (10)
  1. CLARITHROMYCIN [Suspect]
     Indication: ISCHAEMIC ULCER
     Route: 048
     Dates: start: 20090801, end: 20110606
  2. FUROSEMIDE [Concomitant]
     Indication: CARDIAC FAILURE CONGESTIVE
     Route: 048
  3. FUSIDATE SODIUM [Suspect]
     Indication: OSTEOMYELITIS
     Route: 048
     Dates: start: 20090901, end: 20110605
  4. CLARITHROMYCIN [Suspect]
     Indication: OSTEOMYELITIS
     Route: 048
     Dates: start: 20090801, end: 20110606
  5. ATORVASTATIN [Suspect]
     Indication: MYOCARDIAL ISCHAEMIA
     Route: 048
     Dates: start: 20090101, end: 20110606
  6. BISOPROLOL FUMARATE [Concomitant]
     Indication: MYOCARDIAL ISCHAEMIA
     Route: 048
  7. FUSIDATE SODIUM [Suspect]
     Indication: ISCHAEMIC ULCER
     Route: 048
     Dates: start: 20090901, end: 20110605
  8. LACTULOSE [Concomitant]
     Indication: PRODUCT USED FOR UNKNOWN INDICATION
     Route: 048
  9. NOVOMIX [Concomitant]
     Indication: PRODUCT USED FOR UNKNOWN INDICATION
     Route: 058
  10. WARFARIN SODIUM [Concomitant]
     Indication: ATRIAL FIBRILLATION
     Route: 048

REACTIONS (2)
  - RENAL FAILURE ACUTE [None]
  - RHABDOMYOLYSIS [None]
